FAERS Safety Report 5350329-8 (Version None)
Quarter: 2007Q2

REPORT INFORMATION
  Report Type: 
  Country: None (occurrence: None)
  Receive Date: 20070516
  Receipt Date: 20061218
  Transmission Date: 20071010
  Serious: Yes (Other)
  Sender: FDA-Public Use
  Company Number: 2006155061

PATIENT
  Age: 18 Year
  Sex: Female

DRUGS (3)
  1. DEPO-PROVERA [Suspect]
     Indication: CONTRACEPTION
     Dosage: (FIRST INJECTION)
     Dates: start: 20060901, end: 20060901
  2. DEPO-PROVERA [Suspect]
     Dosage: (MOST RECENT INJECTION)
     Dates: start: 20061213, end: 20061213
  3. VITAMIN C (VITAMIN C) [Concomitant]

REACTIONS (1)
  - UNINTENDED PREGNANCY [None]
